FAERS Safety Report 24285481 (Version 1)
Quarter: 2024Q3

REPORT INFORMATION
  Report Type: Spontaneous
  Country: PK (occurrence: PK)
  Receive Date: 20240905
  Receipt Date: 20240905
  Transmission Date: 20241016
  Serious: Yes (Death, Other)
  Sender: ALKEM
  Company Number: PK-ALKEM LABORATORIES LIMITED-PK-ALKEM-2024-20606

PATIENT
  Age: 94 Year
  Sex: Male

DRUGS (2)
  1. TRAMADOL HYDROCHLORIDE AND ACETAMINOPHEN [Suspect]
     Active Substance: ACETAMINOPHEN\TRAMADOL HYDROCHLORIDE
     Indication: Analgesic therapy
     Dosage: TRAMADOL HYDROCHLORIDE 37.5 MILLIGRAM AND ACETAMINOPHEN 325 MILLIGRAM BD
     Route: 048
  2. DICLOFENAC SODIUM\MISOPROSTOL [Suspect]
     Active Substance: DICLOFENAC SODIUM\MISOPROSTOL
     Indication: Analgesic therapy
     Dosage: DICLOFENAC 50 MICROGRAM AND MISOPROSTOL 200 MICROGRAM, BID
     Route: 048

REACTIONS (1)
  - Pneumonia [Fatal]
